FAERS Safety Report 21138635 (Version 1)
Quarter: 2022Q3

REPORT INFORMATION
  Report Type: Spontaneous
  Country: IT (occurrence: IT)
  Receive Date: 20220727
  Receipt Date: 20220727
  Transmission Date: 20221027
  Serious: Yes (Hospitalization)
  Sender: FDA-Public Use
  Company Number: None

PATIENT
  Age: 43 Year
  Sex: Female

DRUGS (3)
  1. LEVETIRACETAM [Suspect]
     Active Substance: LEVETIRACETAM
     Indication: Respiratory disorder
     Route: 040
  2. LEVETIRACETAM [Suspect]
     Active Substance: LEVETIRACETAM
     Route: 040
  3. LACOSAMIDE [Suspect]
     Active Substance: LACOSAMIDE
     Indication: Respiratory disorder
     Route: 040

REACTIONS (1)
  - Therapy partial responder [Unknown]
